FAERS Safety Report 23692382 (Version 1)
Quarter: 2024Q2

REPORT INFORMATION
  Report Type: Report from Study
  Country: US (occurrence: US)
  Receive Date: 20240401
  Receipt Date: 20240401
  Transmission Date: 20240716
  Serious: Yes (Hospitalization)
  Sender: FDA-Public Use
  Company Number: US-PFIZER INC-PV202400040663

PATIENT
  Age: 89 Year
  Sex: Female

DRUGS (1)
  1. VYNDAMAX [Suspect]
     Active Substance: TAFAMIDIS
     Indication: Amyloidosis
     Dosage: TAKE ONE CAPSULE BY MOUTH ONCE DAILY
     Route: 048
     Dates: start: 20230804

REACTIONS (1)
  - Cerebrovascular accident [Not Recovered/Not Resolved]
